FAERS Safety Report 8312142-9 (Version None)
Quarter: 2012Q2

REPORT INFORMATION
  Report Type: 
  Country: None (occurrence: None)
  Receive Date: 20120425
  Receipt Date: 20110808
  Transmission Date: 20120825
  Serious: Yes (Other)
  Sender: FDA-Public Use
  Company Number: US-TEVA-US017763

PATIENT
  Sex: Male
  Weight: 62 kg

DRUGS (10)
  1. LASIX [Concomitant]
     Indication: HYPERTENSION
     Dosage: 10 MILLIGRAM;
     Route: 048
  2. ALBUTEROL [Concomitant]
     Route: 065
  3. TERAZOSIN HCL [Concomitant]
     Indication: BLADDER DISORDER
     Dosage: 2 MILLIGRAM;
     Route: 048
  4. MULTI-VITAMINS [Concomitant]
     Route: 048
  5. PROVIGIL [Suspect]
     Indication: SOMNOLENCE
     Dosage: 200 MILLIGRAM;
     Route: 048
     Dates: start: 20060527, end: 20060529
  6. LISINOPRIL [Concomitant]
     Indication: HYPERTENSION
     Dosage: 20 MILLIGRAM;
     Route: 048
  7. COREG [Concomitant]
     Indication: CARDIAC DISORDER
     Dosage: 6.25 MILLIGRAM;
     Route: 048
  8. ARICEPT [Concomitant]
     Indication: MEMORY IMPAIRMENT
     Dosage: 10 MILLIGRAM;
     Route: 048
  9. ZOLOFT [Concomitant]
     Indication: DEPRESSION
     Dosage: 100 MILLIGRAM;
     Route: 048
  10. OMEPRAZOLE [Concomitant]
     Indication: GASTRIC DISORDER
     Dosage: 20 MILLIGRAM;
     Route: 048

REACTIONS (3)
  - SUICIDAL IDEATION [None]
  - INSOMNIA [None]
  - AGITATION [None]
